FAERS Safety Report 9137111 (Version 1)
Quarter: 2013Q1

REPORT INFORMATION
  Report Type: Spontaneous
  Country: US (occurrence: US)
  Receive Date: 20130219
  Receipt Date: 20130219
  Transmission Date: 20140127
  Serious: No
  Sender: FDA-Public Use
  Company Number: US-BRISTOL-MYERS SQUIBB COMPANY-16799728

PATIENT
  Age: 44 Year
  Sex: Female
  Weight: 112.92 kg

DRUGS (4)
  1. ABATACEPT SUBQ INJECTION 125MG/ML [Suspect]
     Indication: RHEUMATOID ARTHRITIS
     Dosage: LAST DATE OF INJECTION: 19JUL2012,PRESCRIPTION #:0010002533?DURATION:ABOUT 2 WEEKS^
     Route: 058
  2. PLAQUENIL [Concomitant]
  3. PREDNISONE [Concomitant]
  4. VITAMIN D3 [Concomitant]

REACTIONS (2)
  - Fall [Unknown]
  - Excoriation [Unknown]
